FAERS Safety Report 9366518 (Version 1)
Quarter: 2013Q2

REPORT INFORMATION
  Report Type: Spontaneous
  Country: IT (occurrence: None)
  Receive Date: 20130620
  Receipt Date: 20130620
  Transmission Date: 20140414
  Serious: Yes (Hospitalization)
  Sender: FDA-Public Use
  Company Number: GER/ITL/13/0030011

PATIENT
  Age: 88 Year
  Sex: Male

DRUGS (7)
  1. CLOPIDOGREL [Suspect]
     Indication: PRODUCT USED FOR UNKNOWN INDICATION
     Route: 048
     Dates: start: 20121101, end: 20130103
  2. RAMIPRIL (RAMIPRIL) [Concomitant]
  3. PRADIF (TAMSULOSIN HYDROCHLORIDE) [Concomitant]
  4. LASIX (FUROSEMIDE) [Concomitant]
  5. DIUREK (POTASSIUM CANRENOATE) [Concomitant]
  6. LANOXIN (DIGOXIN) [Concomitant]
  7. ZAROXOLYN (METOLAZONE) [Concomitant]

REACTIONS (9)
  - Melaena [None]
  - Syncope [None]
  - Anaemia [None]
  - Hypotension [None]
  - Bradycardia [None]
  - Face injury [None]
  - Facial bones fracture [None]
  - Atrial fibrillation [None]
  - Limb injury [None]
